FAERS Safety Report 4563518-7 (Version None)
Quarter: 2005Q1

REPORT INFORMATION
  Report Type: 
  Country: None (occurrence: None)
  Receive Date: 20050128
  Receipt Date: 20040803
  Transmission Date: 20050727
  Serious: No
  Sender: FDA-Public Use
  Company Number: DSA_24592_2004

PATIENT
  Age: 77 Year
  Sex: Female
  Weight: 45 kg

DRUGS (6)
  1. WELLBUTRIN [Suspect]
     Route: 048
     Dates: start: 20040507
  2. CARDIZEM [Suspect]
     Indication: HYPERTENSION
     Dosage: 240MG PER DAY
     Route: 065
     Dates: start: 20040430, end: 20040520
  3. ADVAIR DISKUS 100/50 [Concomitant]
     Indication: DRUG USE FOR UNKNOWN INDICATION
     Route: 055
     Dates: start: 20040416, end: 20040516
  4. XOPENEX [Concomitant]
     Indication: DRUG USE FOR UNKNOWN INDICATION
     Dates: start: 20040416, end: 20040516
  5. UNKNOWN MEDICATION [Concomitant]
  6. PREDNISONE [Concomitant]
     Indication: DRUG USE FOR UNKNOWN INDICATION
     Dates: start: 20040416, end: 20040521

REACTIONS (7)
  - DERMATITIS EXFOLIATIVE [None]
  - DISEASE RECURRENCE [None]
  - HYPERSENSITIVITY [None]
  - SENSORY LOSS [None]
  - SKIN DISCOLOURATION [None]
  - SKIN HYPERTROPHY [None]
  - WEIGHT DECREASED [None]
